FAERS Safety Report 7929672-1 (Version None)
Quarter: 2011Q4

REPORT INFORMATION
  Report Type: 
  Country: None (occurrence: None)
  Receive Date: 20111116
  Receipt Date: 20111103
  Transmission Date: 20120403
  Serious: Yes (Other)
  Sender: FDA-Public Use
  Company Number: DSU-2011-08195

PATIENT
  Age: 63 Year
  Sex: Female
  Weight: 69.4003 kg

DRUGS (5)
  1. SYNTHROID [Concomitant]
  2. BENICAR [Suspect]
     Indication: HYPERTENSION
     Dosage: 40 MG (40 MG, QD) PER ORAL
     Route: 048
     Dates: start: 20110101, end: 20110801
  3. GLIMEPIRIDE [Concomitant]
  4. PRAVASTATIN [Concomitant]
  5. METFORMIN HCL [Concomitant]

REACTIONS (4)
  - RENAL IMPAIRMENT [None]
  - HEADACHE [None]
  - RENAL CYST [None]
  - CYST [None]
